FAERS Safety Report 5166582-X (Version None)
Quarter: 2006Q4

REPORT INFORMATION
  Report Type: 
  Country: None (occurrence: None)
  Receive Date: 20061207
  Receipt Date: 20060406
  Transmission Date: 20070319
  Serious: Yes (Other)
  Sender: FDA-Public Use
  Company Number: US-BRISTOL-MYERS SQUIBB COMPANY-13339908

PATIENT
  Age: 58 Year
  Sex: Female

DRUGS (4)
  1. ESTRACE [Suspect]
     Indication: HORMONE THERAPY
  2. PROVERA [Suspect]
     Indication: HORMONE THERAPY
  3. PREMARIN [Suspect]
     Indication: HORMONE THERAPY
  4. PREMPRO [Suspect]
     Indication: HORMONE THERAPY

REACTIONS (1)
  - BREAST CANCER [None]
